FAERS Safety Report 7692831-X (Version None)
Quarter: 2011Q3

REPORT INFORMATION
  Report Type: 
  Country: None (occurrence: None)
  Receive Date: 20110819
  Receipt Date: 20110809
  Transmission Date: 20111222
  Serious: Yes (Other)
  Sender: FDA-Public Use
  Company Number: US-JNJFOC-20110807151

PATIENT
  Sex: Female

DRUGS (1)
  1. TOPAMAX [Suspect]
     Indication: DEPRESSION
     Route: 048

REACTIONS (6)
  - DIARRHOEA [None]
  - ADVERSE EVENT [None]
  - AMNESIA [None]
  - ABNORMAL LOSS OF WEIGHT [None]
  - FATIGUE [None]
  - DECREASED APPETITE [None]
